FAERS Safety Report 5771763-8 (Version None)
Quarter: 2008Q2

REPORT INFORMATION
  Report Type: 
  Country: None (occurrence: None)
  Receive Date: 20080613
  Receipt Date: 20080603
  Transmission Date: 20081010
  Serious: Yes (Hospitalization, Other)
  Sender: FDA-Public Use
  Company Number: US-ROCHE-527517

PATIENT
  Sex: Female

DRUGS (5)
  1. PEG-INTERFERON A-2A (RO 25-8310) [Suspect]
     Dosage: FORM: PRE-FILLED SYRINGE (PFS)
     Route: 065
     Dates: start: 20070909, end: 20071007
  2. PEG-INTERFERON A-2A (RO 25-8310) [Suspect]
     Dosage: MISSED 2 WEEKS OF TREATMENT, FORM: PFS
     Route: 065
     Dates: start: 20071028
  3. RIBAVIRIN [Suspect]
     Route: 065
     Dates: start: 20070909, end: 20071007
  4. RIBAVIRIN [Suspect]
     Dosage: MISSED 2 WEEKS OF TREATMENT
     Route: 065
     Dates: start: 20071028
  5. XANAX [Concomitant]

REACTIONS (19)
  - ALOPECIA [None]
  - BACK PAIN [None]
  - BURNOUT SYNDROME [None]
  - DIZZINESS [None]
  - DYSPNOEA [None]
  - FATIGUE [None]
  - GINGIVAL BLEEDING [None]
  - HEADACHE [None]
  - HOT FLUSH [None]
  - INFLUENZA LIKE ILLNESS [None]
  - LACRIMATION INCREASED [None]
  - MANIA [None]
  - MENSTRUATION IRREGULAR [None]
  - MIGRAINE [None]
  - NAUSEA [None]
  - PAIN [None]
  - RHINORRHOEA [None]
  - SINUS CONGESTION [None]
  - VOMITING [None]
